FAERS Safety Report 13641327 (Version 1)
Quarter: 2017Q2

REPORT INFORMATION
  Report Type: Spontaneous
  Country: US (occurrence: US)
  Receive Date: 20170609
  Receipt Date: 20170609
  Transmission Date: 20170830
  Serious: No
  Sender: FDA-Public Use
  Company Number: None

PATIENT
  Age: 74 Year
  Sex: Female

DRUGS (1)
  1. PROLIA [Suspect]
     Active Substance: DENOSUMAB
     Dosage: 60MG Q 6 MONTHS SQ??DATE OF EVENT GIVEN 12/15/2017 IS GREATER THAN CURRENT DATE
     Route: 058

REACTIONS (1)
  - Flatulence [None]
